FAERS Safety Report 9070357 (Version 2)
Quarter: 2013Q2

REPORT INFORMATION
  Report Type: Spontaneous
  Country: US (occurrence: US)
  Receive Date: 20130215
  Receipt Date: 20130515
  Transmission Date: 20140414
  Serious: Yes (Hospitalization, Other)
  Sender: FDA-Public Use
  Company Number: US-BAYER-2013-018070

PATIENT
  Age: 34 Year
  Sex: Female
  Weight: 150 kg

DRUGS (26)
  1. YAZ [Suspect]
     Dosage: UNK
     Dates: start: 2010, end: 2011
  2. BEYAZ [Suspect]
  3. YASMIN [Suspect]
     Dosage: UNK
     Dates: start: 2010, end: 2011
  4. OCELLA [Suspect]
     Dosage: UNK
     Dates: start: 2010, end: 2011
  5. PAROXETINE [Concomitant]
     Dosage: 20 MG, EVERY DAY
     Route: 048
     Dates: start: 20110124
  6. METFORMIN [Concomitant]
     Indication: POLYCYSTIC OVARIES
     Dosage: 1000 MG, UNK
     Route: 048
     Dates: start: 20110124, end: 20110703
  7. BENICAR [Concomitant]
     Indication: HYPERTENSION
     Dosage: 20 MG, DAILY
     Route: 048
     Dates: start: 20110323, end: 20110328
  8. BENICAR [Concomitant]
     Indication: HYPERTENSION
     Dosage: 12.5 MG, DAILY
  9. BENADRYL [Concomitant]
     Indication: RHINITIS ALLERGIC
     Dosage: UNK
     Dates: start: 20110323
  10. CLARITIN [Concomitant]
     Indication: RHINITIS ALLERGIC
     Dosage: UNK
     Dates: start: 20110323
  11. ADVAIR [Concomitant]
     Indication: ASTHMA
     Dosage: 250/50, 2 PUFFS DAILY
     Route: 045
     Dates: start: 20110323, end: 20110329
  12. AUGMENTIN [Concomitant]
     Dosage: 875-125 MG TWICE DAILY FOR 7 DAYS
     Route: 048
     Dates: start: 20110325, end: 20110328
  13. BENZONATATE [Concomitant]
     Indication: COUGH
     Dosage: 100 MG, EVERY 6 HOURS AS NEEDED
     Route: 048
     Dates: start: 20110325, end: 20110403
  14. PAXIL [Concomitant]
     Dosage: 20 MG, UNK
  15. PAXIL [Concomitant]
     Dosage: 20 MG, Q UNK
  16. TESSALON PERLES [Concomitant]
     Dosage: 100 MG, UNK
  17. SALINE [Concomitant]
     Route: 042
  18. METOPROLOL [Concomitant]
     Dosage: 50 MG, UNK
  19. TYLENOL [Concomitant]
     Indication: PAIN
     Dosage: 500 MG, UNK
  20. TYLENOL [Concomitant]
     Indication: PYREXIA
  21. LEVAQUIN [Concomitant]
     Dosage: 750 MG, DAILY
     Route: 042
  22. MILK OF MAGNESIA [Concomitant]
     Dosage: 30 CC, Q HS
  23. PROTONIX [Concomitant]
     Dosage: 40 MG, DAILY
  24. IRON [Concomitant]
     Dosage: 342 MG, UNK
  25. MULTIVITAMIN [Concomitant]
     Dosage: UNK, DAILY
  26. SYMBICORT [Concomitant]
     Dosage: 2 PUFFS, DAILY

REACTIONS (10)
  - Pulmonary embolism [None]
  - Pulmonary embolism [Recovered/Resolved]
  - Deep vein thrombosis [Recovered/Resolved]
  - Injury [None]
  - Abdominal pain [None]
  - Pain [None]
  - General physical health deterioration [None]
  - Anxiety [None]
  - Emotional distress [None]
  - Pain [None]
